FAERS Safety Report 7805064-0 (Version None)
Quarter: 2011Q4

REPORT INFORMATION
  Report Type: 
  Country: None (occurrence: None)
  Receive Date: 20111010
  Receipt Date: 20110930
  Transmission Date: 20120403
  Serious: Yes (Hospitalization)
  Sender: FDA-Public Use
  Company Number: FR-GLAXOSMITHKLINE-B0751877A

PATIENT
  Sex: Female

DRUGS (2)
  1. LAPATINIB [Suspect]
     Indication: BREAST CANCER METASTATIC
     Dosage: 1250MG PER DAY
     Route: 048
     Dates: start: 20110405
  2. XELODA [Suspect]
     Indication: BREAST CANCER METASTATIC
     Dosage: 1500MG TWICE PER DAY
     Route: 048
     Dates: start: 20110405

REACTIONS (7)
  - NAUSEA [None]
  - HYPOKALAEMIA [None]
  - VOMITING [None]
  - WEIGHT DECREASED [None]
  - DEHYDRATION [None]
  - DIARRHOEA [None]
  - FOOD INTOLERANCE [None]
